FAERS Safety Report 6298413-9 (Version None)
Quarter: 2009Q3

REPORT INFORMATION
  Report Type: 
  Country: None (occurrence: None)
  Receive Date: 20090805
  Receipt Date: 20090724
  Transmission Date: 20100115
  Serious: Yes (Death, Other)
  Sender: FDA-Public Use
  Company Number: US-BRISTOL-MYERS SQUIBB COMPANY-14728406

PATIENT
  Age: 49 Year
  Sex: Male
  Weight: 67 kg

DRUGS (3)
  1. CETUXIMAB [Suspect]
     Indication: NON-SMALL CELL LUNG CANCER
     Dosage: 1ST INF: 10JUL09 2ND INF: 17JUL09 3RD INF: 24JUL09
     Route: 042
     Dates: start: 20090710, end: 20090724
  2. CARBOPLATIN [Suspect]
     Indication: NON-SMALL CELL LUNG CANCER
     Route: 042
     Dates: start: 20090710, end: 20090710
  3. GEMCITABINE [Suspect]
     Indication: NON-SMALL CELL LUNG CANCER
     Dosage: 1ST INF: 10JUL09 2ND INF: 17JUL09
     Route: 042
     Dates: start: 20090710, end: 20090717

REACTIONS (2)
  - SUDDEN DEATH [None]
  - THROMBOCYTOPENIA [None]
